FAERS Safety Report 5589628-3 (Version None)
Quarter: 2008Q1

REPORT INFORMATION
  Report Type: 
  Country: None (occurrence: None)
  Receive Date: 20080114
  Receipt Date: 20080103
  Transmission Date: 20080703
  Serious: Yes (Death, Other)
  Sender: FDA-Public Use
  Company Number: B0359694A

PATIENT
  Sex: Female

DRUGS (3)
  1. SEROXAT [Suspect]
     Route: 065
     Dates: start: 19981118
  2. EFFEXOR [Concomitant]
     Dates: start: 20020109
  3. PROZAC [Concomitant]
     Dates: start: 20020304

REACTIONS (8)
  - AGITATION [None]
  - COMPLETED SUICIDE [None]
  - DISTURBANCE IN ATTENTION [None]
  - FATIGUE [None]
  - HEADACHE [None]
  - MEMORY IMPAIRMENT [None]
  - SUICIDAL IDEATION [None]
  - SUICIDE ATTEMPT [None]
